FAERS Safety Report 9454338 (Version 1)
Quarter: 2013Q3

REPORT INFORMATION
  Report Type: Spontaneous
  Country: BR (occurrence: BR)
  Receive Date: 20130812
  Receipt Date: 20130812
  Transmission Date: 20140515
  Serious: Yes (Other)
  Sender: FDA-Public Use
  Company Number: PHHY2013BR084969

PATIENT
  Age: 49 Year
  Sex: Male

DRUGS (5)
  1. DIOVAN [Suspect]
     Indication: HYPERTENSION
     Dosage: 160 MG, QD (IN THE MORNING)
     Route: 048
     Dates: end: 2012
  2. DIOVAN [Suspect]
     Dosage: 160MG, QD
     Dates: start: 201307
  3. DIOVAN TRIPLE [Suspect]
     Indication: HYPERTENSION
     Dosage: 1 DF (VALS160MG, AMLO 12.5MG, HCTZ10 MG), DAILY
     Route: 048
  4. DIOVAN TRIPLE [Suspect]
     Dosage: 1 DF  (VALS160MG, AMLO 12.5MG, HCTZ10 MG), QD (AT NIGHT)
  5. PREDNISOLONE [Suspect]
     Indication: HYPERSENSITIVITY
     Dosage: 2 DF (5 MG), DAILY

REACTIONS (4)
  - Prostate cancer [Unknown]
  - Hypertension [Recovered/Resolved]
  - Wrong technique in drug usage process [Unknown]
  - Expired drug administered [Unknown]
